FAERS Safety Report 11594844 (Version 1)
Quarter: 2015Q4

REPORT INFORMATION
  Report Type: Spontaneous
  Country: EC (occurrence: EC)
  Receive Date: 20151005
  Receipt Date: 20151005
  Transmission Date: 20160304
  Serious: Yes (Life-Threatening, Hospitalization)
  Sender: FDA-Public Use
  Company Number: EC-B.I. PHARMACEUTICALS,INC./RIDGEFIELD-2015-BI-54413EB

PATIENT
  Age: 36 Year
  Sex: Male

DRUGS (6)
  1. CEFUROXIME. [Concomitant]
     Active Substance: CEFUROXIME
     Indication: POSTOPERATIVE CARE
     Dosage: 1000 MG
     Route: 048
     Dates: start: 20150905, end: 20150925
  2. PRADAXA [Suspect]
     Active Substance: DABIGATRAN ETEXILATE MESYLATE
     Indication: LIGAMENT OPERATION
     Dosage: 110 MG
     Route: 048
     Dates: start: 20150904, end: 20150904
  3. PRADAXA [Suspect]
     Active Substance: DABIGATRAN ETEXILATE MESYLATE
     Dosage: 220 MG
     Route: 048
     Dates: start: 20150905, end: 20150925
  4. KETOROLAC [Concomitant]
     Active Substance: KETOROLAC\KETOROLAC TROMETHAMINE
     Indication: POSTOPERATIVE ANALGESIA
     Dosage: 40 MG
     Route: 048
     Dates: start: 20150905, end: 20150925
  5. CEFUROXIME. [Concomitant]
     Active Substance: CEFUROXIME
     Indication: PYREXIA
  6. KETOROLAC [Concomitant]
     Active Substance: KETOROLAC\KETOROLAC TROMETHAMINE
     Indication: ANTIINFLAMMATORY THERAPY

REACTIONS (2)
  - Off label use [Unknown]
  - Pulmonary embolism [Recovered/Resolved]

NARRATIVE: CASE EVENT DATE: 20150904
